FAERS Safety Report 19271635 (Version 2)
Quarter: 2021Q4

REPORT INFORMATION
  Report Type: Spontaneous
  Country: US (occurrence: US)
  Receive Date: 20210518
  Receipt Date: 20211019
  Transmission Date: 20220304
  Serious: Yes (Other)
  Sender: FDA-Public Use
  Company Number: US-BRISTOL-MYERS SQUIBB COMPANY-BMS-2021-047593

PATIENT
  Age: 76 Year
  Sex: Male

DRUGS (8)
  1. ELIQUIS [Suspect]
     Active Substance: APIXABAN
     Indication: Cerebrovascular accident prophylaxis
     Dosage: 5 MILLIGRAM, BID
     Route: 048
     Dates: start: 20210121
  2. ASPIRIN [Suspect]
     Active Substance: ASPIRIN
     Indication: Product used for unknown indication
     Dosage: UNK
     Route: 065
  3. DOCUSATE [Concomitant]
     Active Substance: DOCUSATE
     Indication: Product used for unknown indication
     Dosage: 100 MILLIGRAM, PRN
     Route: 065
  4. ENTRESTO [Concomitant]
     Active Substance: SACUBITRIL\VALSARTAN
     Indication: Cardiac failure congestive
     Dosage: 24/26 MG, BID
     Route: 048
     Dates: start: 20210127
  5. FUROSEMIDE [Concomitant]
     Active Substance: FUROSEMIDE
     Indication: Oedema
     Dosage: 20 MILLIGRAM, QD
     Route: 048
  6. PANTOPRAZOLE [Concomitant]
     Active Substance: PANTOPRAZOLE
     Indication: Gastrooesophageal reflux disease
     Dosage: 10 GRAM, QD
     Route: 048
  7. TYLENOL [Concomitant]
     Active Substance: ACETAMINOPHEN
     Indication: Atrial fibrillation
     Dosage: 25 GRAM
     Route: 048
  8. SPIRONOLACTONE [Concomitant]
     Active Substance: SPIRONOLACTONE
     Indication: Cardiac failure chronic
     Dosage: 25 GRAM, QD
     Route: 048

REACTIONS (4)
  - Crohn^s disease [Unknown]
  - Haematochezia [Unknown]
  - Increased tendency to bruise [Unknown]
  - Constipation [Unknown]
